FAERS Safety Report 7101447-5 (Version None)
Quarter: 2010Q4

REPORT INFORMATION
  Report Type: 
  Country: None (occurrence: None)
  Receive Date: 20101115
  Receipt Date: 20101104
  Transmission Date: 20110411
  Serious: Yes (Hospitalization)
  Sender: FDA-Public Use
  Company Number: US-ASTRAZENECA-2010SE52455

PATIENT
  Age: 35 Year
  Sex: Female

DRUGS (2)
  1. SEROQUEL XR [Suspect]
     Indication: BIPOLAR DISORDER
     Route: 048
     Dates: start: 20100101, end: 20101103
  2. SEROQUEL XR [Suspect]
     Route: 048
     Dates: start: 20101104

REACTIONS (3)
  - CONSTIPATION [None]
  - INFREQUENT BOWEL MOVEMENTS [None]
  - TACHYPHRENIA [None]
